FAERS Safety Report 13728554 (Version 1)
Quarter: 2017Q3

REPORT INFORMATION
  Report Type: Other
  Country: NL (occurrence: NL)
  Receive Date: 20170707
  Receipt Date: 20170707
  Transmission Date: 20171127
  Serious: Yes (Congenital Anomaly)
  Sender: FDA-Public Use
  Company Number: NL-ORCHID HEALTHCARE-2023054

PATIENT
  Sex: Male
  Weight: 3.1 kg

DRUGS (1)
  1. DIVALPROEX SODIUM. [Suspect]
     Active Substance: DIVALPROEX SODIUM
     Indication: JUVENILE MYOCLONIC EPILEPSY
     Route: 065

REACTIONS (4)
  - Foetal exposure during pregnancy [Not Recovered/Not Resolved]
  - Foetal anticonvulsant syndrome [Not Recovered/Not Resolved]
  - Withdrawal syndrome [Unknown]
  - Drug level above therapeutic [Unknown]
